FAERS Safety Report 4686430-1 (Version None)
Quarter: 2005Q2

REPORT INFORMATION
  Report Type: 
  Country: None (occurrence: None)
  Receive Date: 20050606
  Receipt Date: 20050519
  Transmission Date: 20051028
  Serious: Yes (Hospitalization, Other)
  Sender: FDA-Public Use
  Company Number: EWC041041105

PATIENT
  Sex: Female

DRUGS (6)
  1. ZYPREXA [Suspect]
     Indication: BIPOLAR DISORDER
     Dosage: 30 MG DAY
     Route: 048
     Dates: start: 20041003
  2. LEVOTHYROXINE SODIUM [Concomitant]
  3. VITAMINS [Concomitant]
  4. CIPRALEX                   (ESCITALOPRAM OXALATE) [Concomitant]
  5. EFECTIN (VENLAFAXINE HYDROCHLORIDE) [Concomitant]
  6. CITALOPRAM HYDROBROMIDE [Concomitant]

REACTIONS (5)
  - DRUG EXPOSURE DURING PREGNANCY [None]
  - DRUG TOXICITY [None]
  - INTENTIONAL MISUSE [None]
  - PREMATURE LABOUR [None]
  - SUICIDE ATTEMPT [None]
